FAERS Safety Report 23396194 (Version 8)
Quarter: 2024Q3

REPORT INFORMATION
  Report Type: Report from Study
  Country: US (occurrence: US)
  Receive Date: 20240112
  Receipt Date: 20240926
  Transmission Date: 20241017
  Serious: Yes (Other)
  Sender: INSMED
  Company Number: US-INSMED-2022-00925-USAA

PATIENT
  Sex: Female
  Weight: 50 kg

DRUGS (15)
  1. ARIKAYCE [Suspect]
     Active Substance: AMIKACIN
     Indication: Mycobacterium avium complex infection
     Dosage: 590 MILLIGRAM, QD
     Route: 055
     Dates: start: 20220325, end: 20220405
  2. ARIKAYCE [Suspect]
     Active Substance: AMIKACIN
     Dosage: 590 MILLIGRAM, TIW/QOD
     Route: 055
     Dates: start: 20220411, end: 20220416
  3. ARIKAYCE [Suspect]
     Active Substance: AMIKACIN
     Dosage: 590 MILLIGRAM, QD
     Route: 055
     Dates: start: 20220417, end: 202304
  4. ARIKAYCE [Suspect]
     Active Substance: AMIKACIN
     Dosage: 590 MILLIGRAM, QD
     Route: 055
     Dates: start: 2023, end: 2023
  5. ARIKAYCE [Suspect]
     Active Substance: AMIKACIN
     Dosage: 590 MILLIGRAM, QD
     Route: 055
     Dates: start: 2023, end: 2024
  6. ARIKAYCE [Suspect]
     Active Substance: AMIKACIN
     Dosage: UNK, EVERY OTHER MONTH
     Route: 055
     Dates: start: 2024, end: 2024
  7. AZITHROMYCIN [Suspect]
     Active Substance: AZITHROMYCIN
     Indication: Product used for unknown indication
     Dosage: UNK, UNK
     Route: 065
  8. ETHAMBUTOL [Suspect]
     Active Substance: ETHAMBUTOL HYDROCHLORIDE
     Indication: Product used for unknown indication
     Dosage: UNK, UNK
     Route: 048
     Dates: end: 2023
  9. LEXAPRO [Suspect]
     Active Substance: ESCITALOPRAM OXALATE
     Indication: Product used for unknown indication
     Dosage: UNK, UNK
     Route: 065
  10. RIFAMPIN [Suspect]
     Active Substance: RIFAMPIN
     Indication: Product used for unknown indication
     Dosage: UNK, UNK
     Route: 048
     Dates: end: 2023
  11. SBI PROTECT [Concomitant]
     Indication: Supplementation therapy
     Dosage: UNK, UNK
     Route: 065
  12. OMEGAGENICS EPA DHA [Concomitant]
     Indication: Supplementation therapy
     Dosage: UNK, UNK
     Route: 065
  13. HEATHER^S TUMMY FIBER [Concomitant]
     Indication: Supplementation therapy
     Dosage: UNK UNK, UNK
     Route: 065
  14. DIGESTIVE ENZYMES [AMYLASE;BETAINE HYDROCHLORIDE;BROMELAINS;PAPAIN] [Concomitant]
     Indication: Supplementation therapy
     Dosage: UNK, UNK
     Route: 065
  15. SACCHAROMYCES CEREVISIAE [Concomitant]
     Active Substance: SACCHAROMYCES CEREVISIAE
     Indication: Supplementation therapy
     Dosage: UNK, UNK
     Route: 065

REACTIONS (38)
  - Ischaemia [Not Recovered/Not Resolved]
  - Lung disorder [Not Recovered/Not Resolved]
  - Macular degeneration [Unknown]
  - Emergency care [Unknown]
  - Surgery [Unknown]
  - Condition aggravated [Not Recovered/Not Resolved]
  - Atrial flutter [Unknown]
  - Palpitations [Unknown]
  - Cardiac disorder [Unknown]
  - Drug intolerance [Unknown]
  - Gastrointestinal hypermotility [Unknown]
  - Weight gain poor [Unknown]
  - Impaired quality of life [Not Recovered/Not Resolved]
  - Blood sodium abnormal [Not Recovered/Not Resolved]
  - Decreased appetite [Unknown]
  - Abdominal discomfort [Not Recovered/Not Resolved]
  - Aphonia [Recovered/Resolved]
  - Oral candidiasis [Recovered/Resolved]
  - Myalgia [Not Recovered/Not Resolved]
  - Dysphonia [Not Recovered/Not Resolved]
  - Cough [Not Recovered/Not Resolved]
  - General physical health deterioration [Unknown]
  - Tinnitus [Not Recovered/Not Resolved]
  - Diarrhoea [Not Recovered/Not Resolved]
  - Feeling abnormal [Not Recovered/Not Resolved]
  - Malaise [Not Recovered/Not Resolved]
  - Adverse drug reaction [Unknown]
  - Fatigue [Not Recovered/Not Resolved]
  - Unevaluable event [Unknown]
  - Therapy interrupted [Unknown]
  - Off label use [Unknown]
  - Incorrect product administration duration [Unknown]
  - Accidental underdose [Unknown]
  - Drug ineffective [Unknown]
  - Insurance issue [Unknown]
  - Device delivery system issue [Unknown]
  - Patient dissatisfaction with treatment [Unknown]
  - Drug interaction [Unknown]

NARRATIVE: CASE EVENT DATE: 20220101
